FAERS Safety Report 10182789 (Version 2)
Quarter: 2014Q2

REPORT INFORMATION
  Report Type: Spontaneous
  Country: ES (occurrence: ES)
  Receive Date: 20140520
  Receipt Date: 20140530
  Transmission Date: 20141212
  Serious: Yes (Hospitalization)
  Sender: FDA-Public Use
  Company Number: ES-SA-2014SA060203

PATIENT
  Age: 49 Year
  Sex: Male

DRUGS (2)
  1. CLEXANE [Suspect]
     Indication: PRODUCT USED FOR UNKNOWN INDICATION
     Route: 058
     Dates: start: 20140419, end: 20140426
  2. METAMIZOLE SODIUM [Suspect]
     Indication: ANALGESIC THERAPY
     Dosage: 1-0-1
     Route: 065
     Dates: start: 20140419, end: 20140426

REACTIONS (2)
  - Laryngeal oedema [Recovered/Resolved]
  - Skin reaction [Recovered/Resolved]
